FAERS Safety Report 4548823-2 (Version None)
Quarter: 2004Q4

REPORT INFORMATION
  Report Type: 
  Country: None (occurrence: None)
  Receive Date: 20041227
  Receipt Date: 20040915
  Transmission Date: 20050328
  Serious: No
  Sender: FDA-Public Use
  Company Number: 04P-163-0249044-00

PATIENT
  Age: 64 Year
  Sex: Female
  Weight: 77.1115 kg

DRUGS (12)
  1. HUMIRA [Suspect]
     Indication: RHEUMATOID ARTHRITIS
     Dosage: SEE IMAGE
     Route: 058
     Dates: start: 20031126, end: 20040201
  2. HUMIRA [Suspect]
     Indication: RHEUMATOID ARTHRITIS
     Dosage: SEE IMAGE
     Route: 058
     Dates: start: 20040201, end: 20040301
  3. HUMIRA [Suspect]
     Indication: RHEUMATOID ARTHRITIS
     Dosage: SEE IMAGE
     Route: 058
     Dates: start: 20040301, end: 20040801
  4. HUMIRA [Suspect]
     Indication: RHEUMATOID ARTHRITIS
     Dosage: SEE IMAGE
     Route: 058
     Dates: start: 20040801
  5. LANSOPRAZOLE [Concomitant]
  6. LEVOTHYROXINE SODIUM [Concomitant]
  7. OMEGA-3 TRIGLYCERIDES [Concomitant]
  8. MULTI-VITAMINS [Concomitant]
  9. CALCIUM ASCORBATE [Concomitant]
  10. FOLIC ACID [Concomitant]
  11. MILK THISTLE [Concomitant]
  12. CALCIUM GLUCONATE [Concomitant]

REACTIONS (3)
  - DRUG INEFFECTIVE [None]
  - PARANASAL SINUS HYPERSECRETION [None]
  - VISION BLURRED [None]
